FAERS Safety Report 24319078 (Version 4)
Quarter: 2024Q4

REPORT INFORMATION
  Report Type: Spontaneous
  Country: PL (occurrence: PL)
  Receive Date: 20240913
  Receipt Date: 20241216
  Transmission Date: 20250114
  Serious: Yes (Other)
  Sender: MERCK
  Company Number: PL-PFIZER INC-PV202400111116

PATIENT
  Age: 69 Year
  Sex: Male

DRUGS (3)
  1. PEMBROLIZUMAB [Suspect]
     Active Substance: PEMBROLIZUMAB
     Indication: Lung adenocarcinoma stage IV
     Dosage: 200 MG, EVERY 3 WEEKS
  2. PEMETREXED [Suspect]
     Active Substance: PEMETREXED
     Indication: Lung adenocarcinoma stage IV
     Dosage: 500 MG/M2, EVERY 3 WEEKS
  3. CARBOPLATIN [Suspect]
     Active Substance: CARBOPLATIN
     Indication: Lung adenocarcinoma stage IV
     Dosage: 6 MILLIGRAM/SQ. METER

REACTIONS (5)
  - Thrombocytopenia [Recovering/Resolving]
  - Anaemia [Recovering/Resolving]
  - Therapeutic product effect incomplete [Recovering/Resolving]
  - Disease progression [Recovering/Resolving]
  - Haematotoxicity [Unknown]
